FAERS Safety Report 9539238 (Version 1)
Quarter: 2013Q3

REPORT INFORMATION
  Report Type: Spontaneous
  Country: US (occurrence: US)
  Receive Date: 20130920
  Receipt Date: 20130920
  Transmission Date: 20140515
  Serious: Yes (Other)
  Sender: FDA-Public Use
  Company Number: US-SANOFI-AVENTIS-2013SA092066

PATIENT
  Age: 83 Year
  Sex: Female

DRUGS (3)
  1. LANTUS [Suspect]
     Indication: TYPE 2 DIABETES MELLITUS
     Dosage: 32 TO 34 U
     Route: 058
  2. HUMALOG [Concomitant]
  3. LEVAQUIN [Concomitant]

REACTIONS (7)
  - Basal cell carcinoma [Unknown]
  - Tendonitis [Unknown]
  - Injection site bruising [Unknown]
  - Musculoskeletal pain [Unknown]
  - Blood glucose decreased [Unknown]
  - Photopsia [Unknown]
  - Incorrect product storage [Unknown]
